FAERS Safety Report 10210596 (Version 1)
Quarter: 2014Q2

REPORT INFORMATION
  Report Type: Spontaneous
  Country: US (occurrence: US)
  Receive Date: 20140602
  Receipt Date: 20140602
  Transmission Date: 20141212
  Serious: No
  Sender: FDA-Public Use
  Company Number: US-ASTRAZENECA-2014SE35605

PATIENT
  Age: 58 Year
  Sex: Female

DRUGS (3)
  1. CRESTOR [Suspect]
     Indication: BLOOD CHOLESTEROL INCREASED
     Route: 048
     Dates: start: 201311
  2. ATORVASTATIN [Suspect]
     Route: 065
     Dates: start: 2006
  3. ATORVASTATIN [Suspect]
     Route: 065
     Dates: end: 201308

REACTIONS (1)
  - Alopecia [Unknown]
